FAERS Safety Report 25390967 (Version 1)
Quarter: 2025Q2

REPORT INFORMATION
  Report Type: Report from Study
  Country: US (occurrence: US)
  Receive Date: 20250603
  Receipt Date: 20250603
  Transmission Date: 20250716
  Serious: Yes (Other)
  Sender: ROCHE
  Company Number: US-ROCHE-10000298888

PATIENT

DRUGS (10)
  1. ERLOTINIB [Suspect]
     Active Substance: ERLOTINIB
     Indication: Hypoalbuminaemia
     Route: 065
  2. ALECTINIB [Suspect]
     Active Substance: ALECTINIB
     Indication: Hypoalbuminaemia
     Route: 065
  3. COBIMETINIB [Suspect]
     Active Substance: COBIMETINIB
     Indication: Hypoalbuminaemia
     Route: 065
  4. AFATINIB [Suspect]
     Active Substance: AFATINIB
     Indication: Hypoalbuminaemia
     Route: 065
  5. OSIMERTINIB [Suspect]
     Active Substance: OSIMERTINIB
     Indication: Hypoalbuminaemia
     Route: 065
  6. BRIGATINIB [Suspect]
     Active Substance: BRIGATINIB
     Indication: Hypoalbuminaemia
     Route: 065
  7. CRIZOTINIB [Suspect]
     Active Substance: CRIZOTINIB
     Indication: Hypoalbuminaemia
     Route: 065
  8. BINIMETINIB [Suspect]
     Active Substance: BINIMETINIB
     Indication: Hypoalbuminaemia
     Route: 065
  9. SELUMETINIB [Suspect]
     Active Substance: SELUMETINIB
     Indication: Hypoalbuminaemia
     Route: 065
  10. TRAMETINIB [Suspect]
     Active Substance: TRAMETINIB
     Indication: Hypoalbuminaemia
     Route: 065

REACTIONS (20)
  - Diarrhoea [Unknown]
  - Vomiting [Unknown]
  - Rash [Unknown]
  - Headache [Unknown]
  - Fatigue [Unknown]
  - Respiratory symptom [Unknown]
  - Constipation [Unknown]
  - Myalgia [Unknown]
  - Arthralgia [Unknown]
  - Anaemia [Unknown]
  - Thrombocytopenia [Unknown]
  - Oedema [Unknown]
  - Neuropathy peripheral [Unknown]
  - Infection [Unknown]
  - Liver function test abnormal [Unknown]
  - Pruritus [Unknown]
  - Leukopenia [Unknown]
  - Cardiac failure congestive [Unknown]
  - Hypertension [Unknown]
  - Nausea [Unknown]
